FAERS Safety Report 6129692-6 (Version None)
Quarter: 2009Q1

REPORT INFORMATION
  Report Type: 
  Country: None (occurrence: None)
  Receive Date: 20090324
  Receipt Date: 20090319
  Transmission Date: 20090719
  Serious: Yes (Hospitalization)
  Sender: FDA-Public Use
  Company Number: FR-WYE-G03359009

PATIENT
  Sex: Male

DRUGS (24)
  1. TAZOCILLINE [Suspect]
     Indication: SEPSIS SYNDROME
     Dosage: BETWEEN 12 G AND 16 G (TOTAL DAILY)
     Route: 042
     Dates: start: 20081012, end: 20081015
  2. TAZOCILLINE [Suspect]
     Indication: BILE CULTURE POSITIVE
     Route: 042
     Dates: start: 20081019, end: 20081022
  3. TAZOCILLINE [Suspect]
     Indication: PERITONEAL INFECTION
     Route: 042
     Dates: start: 20081208, end: 20081213
  4. TAZOCILLINE [Suspect]
     Indication: STAPHYLOCOCCAL INFECTION
  5. LAROXYL [Concomitant]
     Dosage: FROM 25 MG TO 50 MG (TOTAL DAILY)
     Dates: start: 20080801, end: 20081027
  6. ATARAX [Concomitant]
     Dosage: 50 MG TOTAL DAILY
     Route: 048
     Dates: start: 20081017, end: 20081027
  7. ROVALCYTE [Concomitant]
     Dosage: 900 MG TOTAL DAILY
     Route: 048
     Dates: start: 20081012, end: 20081027
  8. CARDENSIEL [Concomitant]
     Route: 048
     Dates: start: 20081013, end: 20081027
  9. CARDENSIEL [Concomitant]
     Route: 048
     Dates: start: 20081110
  10. GENTAMICIN [Concomitant]
     Indication: SEPSIS SYNDROME
     Route: 042
     Dates: start: 20081019, end: 20081022
  11. OGAST [Concomitant]
     Route: 048
     Dates: start: 20081015, end: 20081027
  12. PROGRAF [Concomitant]
     Dosage: FROM 1 MG TO 10 MG (TOTAL DAILY)
     Dates: start: 20081012, end: 20081218
  13. MEDROL [Concomitant]
     Dosage: 16 MG TOTAL DAILY
     Dates: start: 20081015, end: 20081114
  14. UMULINE [Concomitant]
     Dosage: UNKNOWN
  15. ACTRAPID HUMAN [Concomitant]
     Dosage: UNKNOWN
  16. INIPOMP [Concomitant]
     Dosage: UNKNOWN
     Route: 042
     Dates: start: 20081107, end: 20081218
  17. CYMEVAN [Concomitant]
     Indication: CYTOMEGALOVIRUS INFECTION
     Dosage: 700 MG TOTAL DAILY
     Route: 042
     Dates: start: 20081208, end: 20081218
  18. AMLOR [Concomitant]
     Dosage: 5 MG TOTAL DAILY
     Route: 048
     Dates: start: 20081205
  19. ADANCOR [Concomitant]
     Dosage: 20 MG TOTAL DAILY
     Dates: start: 20081206
  20. ATARAX [Concomitant]
     Dosage: ON REQUEST
     Dates: start: 20081129
  21. EFFERALGAN [Concomitant]
     Dosage: 1 G EVERY 6 HOURS, ON REQUEST
     Dates: start: 20081127
  22. ASPEGIC 325 [Concomitant]
     Dosage: 125 MG TOTAL DAILY
     Dates: start: 20081114
  23. LOVENOX [Concomitant]
     Route: 058
     Dates: start: 20081013, end: 20081019
  24. LOVENOX [Concomitant]
     Route: 058
     Dates: start: 20081110, end: 20081212

REACTIONS (4)
  - CONDITION AGGRAVATED [None]
  - GINGIVAL BLEEDING [None]
  - HAEMORRHAGIC ASCITES [None]
  - THROMBOCYTOPENIA [None]
